FAERS Safety Report 6969443-6 (Version None)
Quarter: 2010Q3

REPORT INFORMATION
  Report Type: 
  Country: None (occurrence: None)
  Receive Date: 20100907
  Receipt Date: 20100902
  Transmission Date: 20110219
  Serious: Yes (Hospitalization)
  Sender: FDA-Public Use
  Company Number: HU-MERCK-0902HUN00001

PATIENT
  Age: 46 Year
  Sex: Male

DRUGS (12)
  1. SINGULAIR [Suspect]
     Indication: ASTHMA
     Route: 048
     Dates: start: 20081125, end: 20081201
  2. AMOXICILLIN [Concomitant]
     Indication: BRONCHITIS
     Route: 065
     Dates: start: 20081125, end: 20081201
  3. METHYLPREDNISOLONE ACETATE [Concomitant]
     Indication: ASTHMA
     Route: 065
     Dates: start: 20081125, end: 20081126
  4. METHYLPREDNISOLONE ACETATE [Concomitant]
     Route: 065
     Dates: start: 20081127, end: 20081128
  5. METHYLPREDNISOLONE ACETATE [Concomitant]
     Route: 065
     Dates: start: 20081129, end: 20081130
  6. METHYLPREDNISOLONE ACETATE [Concomitant]
     Route: 065
     Dates: start: 20081201, end: 20081202
  7. METHYLPREDNISOLONE ACETATE [Concomitant]
     Route: 065
     Dates: start: 20081203, end: 20081204
  8. METHYLPREDNISOLONE ACETATE [Concomitant]
     Route: 065
     Dates: start: 20081205, end: 20081206
  9. CETIRIZINE HYDROCHLORIDE [Concomitant]
     Indication: RHINITIS ALLERGIC
     Route: 048
     Dates: start: 20081125
  10. ALBUTEROL SULFATE [Concomitant]
     Indication: ASTHMA
     Route: 055
     Dates: start: 20080101
  11. BUDESONIDE [Concomitant]
     Indication: ASTHMA
     Route: 055
     Dates: start: 20080101
  12. FORMOTEROL FUMARATE [Concomitant]
     Indication: ASTHMA
     Route: 055
     Dates: start: 20080101

REACTIONS (1)
  - ALLERGIC GRANULOMATOUS ANGIITIS [None]
